FAERS Safety Report 10181909 (Version 1)
Quarter: 2014Q2

REPORT INFORMATION
  Report Type: Spontaneous
  Country: US (occurrence: US)
  Receive Date: 20140519
  Receipt Date: 20140519
  Transmission Date: 20141212
  Serious: No
  Sender: FDA-Public Use
  Company Number: US-SA-2014SA028739

PATIENT
  Age: 3 Year
  Sex: Female

DRUGS (2)
  1. AUVI-Q [Suspect]
     Indication: PRODUCT USED FOR UNKNOWN INDICATION
     Route: 065
  2. EPIPEN [Concomitant]

REACTIONS (1)
  - Product quality issue [Unknown]
